FAERS Safety Report 19957379 (Version 1)
Quarter: 2021Q4

REPORT INFORMATION
  Report Type: Spontaneous
  Country: US (occurrence: US)
  Receive Date: 20211014
  Receipt Date: 20211014
  Transmission Date: 20220303
  Serious: No
  Sender: FDA-Public Use
  Company Number: US-MYLANLABS-2021M1069672

PATIENT
  Sex: Female
  Weight: 78 kg

DRUGS (1)
  1. FENTANYL TRANSDERMAL SYSTEM [Suspect]
     Active Substance: FENTANYL
     Indication: Back pain
     Dosage: 50 MICROGRAM, QD (3 DAYS AT TIME )
     Route: 062

REACTIONS (1)
  - Diarrhoea [Not Recovered/Not Resolved]
